FAERS Safety Report 17444368 (Version 1)
Quarter: 2020Q1

REPORT INFORMATION
  Report Type: Spontaneous
  Country: US (occurrence: US)
  Receive Date: 20200221
  Receipt Date: 20200221
  Transmission Date: 20200409
  Serious: Yes (Disabling, Other)
  Sender: FDA-Public Use
  Company Number: None

PATIENT
  Age: 58 Year
  Sex: Female

DRUGS (1)
  1. TRAMADOL TAB [Suspect]
     Active Substance: TRAMADOL HYDROCHLORIDE
     Indication: PAIN
     Route: 048
     Dates: start: 20200126

REACTIONS (5)
  - Product substitution issue [None]
  - Inadequate analgesia [None]
  - Muscle spasms [None]
  - Pain [None]
  - Drug withdrawal syndrome [None]

NARRATIVE: CASE EVENT DATE: 20200126
